FAERS Safety Report 21349631 (Version 1)
Quarter: 2022Q3

REPORT INFORMATION
  Report Type: Report from Study
  Country: US (occurrence: US)
  Receive Date: 20220919
  Receipt Date: 20220919
  Transmission Date: 20221026
  Serious: Yes (Other)
  Sender: FDA-Public Use
  Company Number: US-MYLANLABS-2022M1094706

PATIENT
  Age: 26 Year
  Sex: Male

DRUGS (14)
  1. TACROLIMUS [Suspect]
     Active Substance: TACROLIMUS
     Indication: Prophylaxis against graft versus host disease
     Dosage: UNK
     Route: 065
  2. METHOTREXATE [Suspect]
     Active Substance: METHOTREXATE
     Indication: Prophylaxis against graft versus host disease
     Dosage: UNK
     Route: 065
  3. ABATACEPT [Suspect]
     Active Substance: ABATACEPT
     Indication: Prophylaxis against graft versus host disease
     Dosage: UNK
     Route: 065
  4. FLUDARABINE [Concomitant]
     Active Substance: FLUDARABINE PHOSPHATE
     Indication: Bone marrow conditioning regimen
     Dosage: UNK (PRE-CONDITIONING REGIMEN)
     Route: 065
  5. FLUDARABINE [Concomitant]
     Active Substance: FLUDARABINE PHOSPHATE
     Indication: Prophylaxis
  6. THIOTEPA [Concomitant]
     Active Substance: THIOTEPA
     Indication: Bone marrow conditioning regimen
     Dosage: UNK (PRE-CONDITIONING REGIMEN)
     Route: 065
  7. THIOTEPA [Concomitant]
     Active Substance: THIOTEPA
     Indication: Prophylaxis
  8. ALEMTUZUMAB [Concomitant]
     Active Substance: ALEMTUZUMAB
     Indication: Bone marrow conditioning regimen
     Dosage: UNK (PRE-CONDITIONING REGIMEN)
     Route: 065
  9. ALEMTUZUMAB [Concomitant]
     Active Substance: ALEMTUZUMAB
     Indication: Prophylaxis
  10. DEFEROXAMINE [Concomitant]
     Active Substance: DEFEROXAMINE MESYLATE
     Indication: Haemosiderosis
     Dosage: UNK (PRE-CONDITIONING REGIMEN)
     Route: 065
  11. DEFERIPRONE [Concomitant]
     Active Substance: DEFERIPRONE
     Indication: Haemosiderosis
     Dosage: UNK
     Route: 065
  12. FERRITIN [Concomitant]
     Active Substance: FERRITIN
     Indication: Product used for unknown indication
     Dosage: UNK
     Route: 065
  13. MELPHALAN [Concomitant]
     Active Substance: MELPHALAN
     Indication: Bone marrow conditioning regimen
     Dosage: UNK (PRE-CONDITIONING REGIMEN)
     Route: 065
  14. MELPHALAN [Concomitant]
     Active Substance: MELPHALAN
     Indication: Prophylaxis

REACTIONS (1)
  - Drug ineffective [Unknown]
